FAERS Safety Report 8302463-8 (Version None)
Quarter: 2012Q2

REPORT INFORMATION
  Report Type: 
  Country: None (occurrence: None)
  Receive Date: 20120420
  Receipt Date: 20120412
  Transmission Date: 20120825
  Serious: Yes (Disabling, Other)
  Sender: FDA-Public Use
  Company Number: GB-TEVA-332839ISR

PATIENT
  Age: 65 Year
  Sex: Female
  Weight: 73 kg

DRUGS (4)
  1. VERAPAMIL [Suspect]
     Route: 048
     Dates: start: 20120206, end: 20120224
  2. CITALOPRAM HYDROBROMIDE [Concomitant]
     Indication: DEPRESSION
     Dosage: LONG TERM
     Route: 048
  3. CANDESARTAN CILEXETIL [Concomitant]
     Indication: HYPERTENSION
     Dosage: LONG TERM
     Route: 048
  4. FOSTAIR [Concomitant]
     Indication: ASTHMA
     Dosage: LONG TERM
     Route: 055

REACTIONS (1)
  - DEEP VEIN THROMBOSIS [None]
